FAERS Safety Report 17235023 (Version 1)
Quarter: 2019Q4

REPORT INFORMATION
  Report Type: Spontaneous
  Country: US (occurrence: US)
  Receive Date: 20191210
  Receipt Date: 20191210
  Transmission Date: 20200122
  Serious: Yes (Death)
  Sender: FDA-Public Use
  Company Number: None

PATIENT
  Age: 70 Year
  Sex: Male

DRUGS (1)
  1. AMIODARONE (AMIODARONE HCL 1.8MG/ML/DE XTROSE 5% INJ, BAG, 500ML) [Suspect]
     Active Substance: AMIODARONE
     Indication: ATRIAL FIBRILLATION
     Dates: start: 20190809, end: 20190810

REACTIONS (7)
  - Acute hepatic failure [None]
  - Hepatic enzyme abnormal [None]
  - Alcoholic [None]
  - Pneumonia [None]
  - Delirium [None]
  - Renal impairment [None]
  - Cardiac failure [None]

NARRATIVE: CASE EVENT DATE: 20190810
